FAERS Safety Report 9736045 (Version 1)
Quarter: 2013Q4

REPORT INFORMATION
  Report Type: Spontaneous
  Country: DE (occurrence: DE)
  Receive Date: 20131206
  Receipt Date: 20131206
  Transmission Date: 20140711
  Serious: Yes (Other)
  Sender: FDA-Public Use
  Company Number: DE-TEVA-447272GER

PATIENT
  Age: 29 Year
  Sex: Female
  Weight: 94 kg

DRUGS (4)
  1. DICLOFENAC [Suspect]
     Indication: RHEUMATOID ARTHRITIS
     Dosage: 225 MILLIGRAM DAILY; UP TO 225 MG/D (2 TO 3 TIMES DAILY 75 MG)
     Route: 048
  2. THYROXIN [Concomitant]
     Indication: HYPOTHYROIDISM
     Dosage: 100 MICROGRAM DAILY; 75 -100 MCG/D
     Route: 048
  3. PREDNISOLON [Concomitant]
     Indication: RHEUMATOID ARTHRITIS
     Dosage: 5 MILLIGRAM DAILY;
     Route: 048
  4. RANITIDIN [Concomitant]
     Indication: GASTRITIS
     Route: 065

REACTIONS (1)
  - Oligohydramnios [Recovered/Resolved]
